FAERS Safety Report 17724774 (Version 1)
Quarter: 2020Q2

REPORT INFORMATION
  Report Type: Spontaneous
  Country: US (occurrence: US)
  Receive Date: 20200429
  Receipt Date: 20200429
  Transmission Date: 20200714
  Serious: Yes (Other)
  Sender: FDA-Public Use
  Company Number: US-SHIRE-US202014875

PATIENT
  Age: 69 Year
  Sex: Female

DRUGS (1)
  1. GATTEX [Suspect]
     Active Substance: TEDUGLUTIDE\WATER
     Indication: PRODUCT USED FOR UNKNOWN INDICATION
     Dosage: 0.5035 UNIT UNKNOWN
     Route: 058
     Dates: start: 20200204

REACTIONS (3)
  - Loss of consciousness [Unknown]
  - Wrist fracture [Unknown]
  - Dehydration [Unknown]

NARRATIVE: CASE EVENT DATE: 20200420
